FAERS Safety Report 14046590 (Version 5)
Quarter: 2017Q4

REPORT INFORMATION
  Report Type: Spontaneous
  Country: US (occurrence: US)
  Receive Date: 20171005
  Receipt Date: 20171201
  Transmission Date: 20180321
  Serious: Yes (Hospitalization, Other)
  Sender: FDA-Public Use
  Company Number: US-PFIZER INC-2017426207

PATIENT
  Age: 73 Year
  Sex: Female
  Weight: 48.5 kg

DRUGS (24)
  1. PHENOBARB [Concomitant]
     Active Substance: PHENOBARBITAL SODIUM
     Indication: SEIZURE
     Dosage: 32.4 MG, 2X/DAY
     Route: 048
     Dates: start: 1970
  2. FOSAMAX [Concomitant]
     Active Substance: ALENDRONATE SODIUM
     Dosage: UNK
  3. DILANTIN [Suspect]
     Active Substance: PHENYTOIN
     Indication: SEIZURE
     Dosage: 2 DF, DAILY (2 PILLS A DAY)
     Dates: start: 1970
  4. DILANTIN [Suspect]
     Active Substance: PHENYTOIN
     Dosage: 300 MG, DAILY (TO TAKE A 3RD DOSE, FOR 3 DAYS IN THE LAST MONTH)
     Route: 048
  5. DETROL LA [Concomitant]
     Active Substance: TOLTERODINE TARTRATE
     Indication: BLADDER SPASM
     Dosage: 4 MG, 1X/DAY
     Route: 048
  6. ANTIVERT [Concomitant]
     Active Substance: MECLIZINE HYDROCHLORIDE
     Dosage: UNK
  7. DILANTIN [Suspect]
     Active Substance: PHENYTOIN
     Dosage: 100 MG, 2X/DAY (100MG, 1 CAPSULE TWICE A DAY)
     Route: 048
     Dates: start: 20170929
  8. MECLIZINE [Concomitant]
     Active Substance: MECLIZINE HYDROCHLORIDE
     Dosage: 12.5 MG, 2X/DAY
     Route: 048
  9. ALEVE [Concomitant]
     Active Substance: NAPROXEN SODIUM
     Indication: HEADACHE
     Dosage: 220 MG, AS NEEDED (220MG TABLET, ONCE A DAY AS NEEDED)
  10. ESTRACE [Concomitant]
     Active Substance: ESTRADIOL
     Dosage: UNK
  11. ATROVENT [Concomitant]
     Active Substance: IPRATROPIUM BROMIDE
     Dosage: UNK
  12. DILANTIN [Suspect]
     Active Substance: PHENYTOIN
     Dosage: 2 DF, DAILY
     Route: 048
  13. DILANTIN [Suspect]
     Active Substance: PHENYTOIN
     Dosage: UNK, 2X/DAY
  14. ATENOLOL. [Concomitant]
     Active Substance: ATENOLOL
     Indication: HYPERTENSION
     Dosage: 50 MG, 2X/DAY
     Route: 048
  15. ATENOLOL. [Concomitant]
     Active Substance: ATENOLOL
     Indication: HEART RATE INCREASED
  16. MECLIZINE [Concomitant]
     Active Substance: MECLIZINE HYDROCHLORIDE
     Indication: DIZZINESS
     Dosage: 12.5 MG, 3X/DAY
     Route: 048
  17. AMIODARONE [Concomitant]
     Active Substance: AMIODARONE
     Dosage: UNK
  18. ALENDRONATE [Concomitant]
     Active Substance: ALENDRONATE SODIUM
     Indication: OSTEOPOROSIS
     Dosage: 70 MG, WEEKLY(70MG TABLET, ONCE WEEKLY ON FRIDAY)
     Route: 048
  19. IPRATROPIUM [Concomitant]
     Active Substance: IPRATROPIUM
     Indication: RHINORRHOEA
     Dosage: 1 OR 2 SPRAYS NASALLY 3 TIMES A DAY IN EACH NOSTRIL
     Route: 045
  20. TENORMIN [Concomitant]
     Active Substance: ATENOLOL
     Dosage: UNK
  21. ESTROVEN [Concomitant]
     Active Substance: DIETARY SUPPLEMENT
     Dosage: UNK
  22. ESTRADIOL. [Concomitant]
     Active Substance: ESTRADIOL
     Indication: HOT FLUSH
     Dosage: 0.5 MG, 1X/DAY
     Route: 048
  23. DILANTIN [Suspect]
     Active Substance: PHENYTOIN
     Dosage: 100 MG, 2X/DAY (100MG, 1 CAPSULE TWICE A DAY)
     Route: 048
     Dates: end: 20170928
  24. ELMIRON [Concomitant]
     Active Substance: PENTOSAN POLYSULFATE SODIUM
     Indication: CYSTITIS
     Dosage: 100 MG, 2X/DAY
     Route: 048

REACTIONS (10)
  - Anticonvulsant drug level increased [Recovered/Resolved]
  - Decreased appetite [Unknown]
  - Ischaemia [Unknown]
  - Tremor [Unknown]
  - Expired product administered [Unknown]
  - Balance disorder [Unknown]
  - Product quality issue [Unknown]
  - Drug intolerance [Unknown]
  - Drug ineffective [Unknown]
  - Toxicity to various agents [Unknown]

NARRATIVE: CASE EVENT DATE: 201708
